FAERS Safety Report 6993662-6 (Version None)
Quarter: 2010Q3

REPORT INFORMATION
  Report Type: 
  Country: None (occurrence: None)
  Receive Date: 20100917
  Receipt Date: 20071005
  Transmission Date: 20110219
  Serious: Yes (Other)
  Sender: FDA-Public Use
  Company Number: US-ASTRAZENECA-2006UW23761

PATIENT
  Age: 67 Year
  Sex: Female
  Weight: 79.4 kg

DRUGS (23)
  1. SEROQUEL [Suspect]
     Indication: DEPRESSION
     Dosage: 100 MG TO 200 MG
     Route: 048
     Dates: start: 20020101, end: 20050201
  2. SEROQUEL [Suspect]
     Dosage: 25 MG, DISPENSED
     Route: 048
     Dates: start: 20040813
  3. METHADONE [Concomitant]
  4. ARICEPT [Concomitant]
     Dosage: 5-10 MG, DISPENSED
     Dates: start: 20040715
  5. SELEGILINE HCL [Concomitant]
     Dosage: 5 MG DISPENSED
     Dates: start: 20040715
  6. TARKA [Concomitant]
     Dosage: 4 MG/240 MG, DISPENSED
     Dates: start: 20040715
  7. FLURAZEPAM [Concomitant]
     Dosage: 30 MG, DISPENSED
     Dates: start: 20040715
  8. PREMARIN [Concomitant]
     Dosage: 0.625 MG, DISPENSED
     Dates: start: 20040715
  9. LEXAPRO [Concomitant]
     Dosage: 20 MG DISPENSED
     Dates: start: 20040722
  10. PRIMIDONE [Concomitant]
     Dosage: 50 MG, DISPENSED
     Dates: start: 20040726
  11. CLONAZEPAM [Concomitant]
     Dosage: 1 MG, DISPENSED
     Dates: start: 20040803
  12. ADVAIR DISKUS 100/50 [Concomitant]
     Dosage: 500/50 MG, DISPENSED
     Dates: start: 20040813
  13. OXYCODONE HCL [Concomitant]
     Dosage: 5 MG, DISPENSED
     Dates: start: 20040813
  14. CYTOMEL [Concomitant]
     Dosage: 25 MCG, DISPENSED
     Dates: start: 20050629
  15. METFORMIN [Concomitant]
     Dosage: 500 MG, DISPENSED
     Dates: start: 20050629
  16. SINGULAIR [Concomitant]
     Dosage: 10 MG, DISPENSED
     Dates: start: 20050629
  17. NAPROXEN [Concomitant]
     Dosage: 500 MG, DISPENSED
     Dates: start: 20050629
  18. LOSARTAN POTASSIUM [Concomitant]
     Dosage: 50 MG, DISPENSED
     Dates: start: 20050910
  19. LORATADINE [Concomitant]
     Dosage: 10 MG, DISPENSED
     Dates: start: 20050910
  20. DOCUSATE SOD [Concomitant]
     Dosage: 100 MG, DISPENSED
     Dates: start: 20050911
  21. CLONIDINE [Concomitant]
     Dosage: 0.1 MG, DISPENSED
     Dates: start: 20050910
  22. ALTACE [Concomitant]
     Dosage: 10 MG, DISPENSED
     Dates: start: 20050910
  23. PROTONIX [Concomitant]
     Dosage: 40 MG, DISPENSED
     Dates: start: 20050909

REACTIONS (2)
  - DIABETES MELLITUS [None]
  - PANCREATITIS [None]
